FAERS Safety Report 16190396 (Version 1)
Quarter: 2019Q2

REPORT INFORMATION
  Report Type: Report from Study
  Country: None (occurrence: US)
  Receive Date: 20190412
  Receipt Date: 20190412
  Transmission Date: 20190711
  Serious: Yes (Other)
  Sender: FDA-Public Use
  Company Number: US-ABBVIE-19K-163-2739727-00

PATIENT
  Age: 42 Year
  Sex: Female

DRUGS (1)
  1. HUMIRA [Suspect]
     Active Substance: ADALIMUMAB
     Indication: RHEUMATOID ARTHRITIS
     Dosage: CITRATE FREE (CF)
     Route: 058

REACTIONS (10)
  - Agitation [Unknown]
  - Pyrexia [Unknown]
  - Intentional self-injury [Unknown]
  - Hyperventilation [Unknown]
  - Tremor [Unknown]
  - Poor quality sleep [Unknown]
  - Nightmare [Unknown]
  - Stress [Unknown]
  - Suicidal ideation [Unknown]
  - Nausea [Unknown]

NARRATIVE: CASE EVENT DATE: 2019
